FAERS Safety Report 16781007 (Version 1)
Quarter: 2019Q3

REPORT INFORMATION
  Report Type: Spontaneous
  Country: US (occurrence: US)
  Receive Date: 20190906
  Receipt Date: 20190906
  Transmission Date: 20191005
  Serious: Yes (Other)
  Sender: FDA-Public Use
  Company Number: US-MYLANLABS-2019M1083152

PATIENT
  Age: 9 Year
  Sex: Female

DRUGS (4)
  1. CYCLOPHOSPHAMIDE. [Suspect]
     Active Substance: CYCLOPHOSPHAMIDE
     Indication: NEUROBLASTOMA
     Dosage: AS A PART OF CHEMOTHERAPY CYCLE 2
     Route: 065
  2. DOXORUBICIN [Suspect]
     Active Substance: DOXORUBICIN
     Indication: NEUROBLASTOMA
     Dosage: AS A PART OF CHEMOTHERAPY CYCLE 2
     Route: 065
  3. CARBOPLATIN. [Suspect]
     Active Substance: CARBOPLATIN
     Indication: NEUROBLASTOMA
     Dosage: AS A PART OF CHEMOTHERAPY CYCLES 1 AND 2
     Route: 065
  4. ETOPOSIDE. [Suspect]
     Active Substance: ETOPOSIDE
     Indication: NEUROBLASTOMA
     Dosage: AS A PART OF CHEMOTHERAPY CYCLE 1
     Route: 065

REACTIONS (4)
  - Haematuria [Recovered/Resolved]
  - Urine output decreased [Recovered/Resolved]
  - Alveolar soft part sarcoma [Recovered/Resolved]
  - Dysuria [Recovered/Resolved]
